FAERS Safety Report 14519036 (Version 2)
Quarter: 2018Q1

REPORT INFORMATION
  Report Type: Report from Study
  Country: TW (occurrence: TW)
  Receive Date: 20180212
  Receipt Date: 20180220
  Transmission Date: 20180509
  Serious: Yes (Death, Hospitalization, Other)
  Sender: FDA-Public Use
  Company Number: TW-JNJFOC-20180132693

PATIENT
  Age: 67 Year
  Sex: Male
  Weight: 78 kg

DRUGS (10)
  1. AMTREL [Concomitant]
     Indication: HYPERTENSION
     Route: 048
     Dates: start: 20120229, end: 20171201
  2. LICODIN [Concomitant]
     Indication: ANTIPLATELET THERAPY
     Route: 048
     Dates: start: 20130403, end: 20180116
  3. LICODIN [Concomitant]
     Indication: ANTICOAGULANT THERAPY
     Route: 048
     Dates: start: 20130403, end: 20180116
  4. MIGBOSE [Concomitant]
     Indication: DIABETES MELLITUS
     Route: 048
     Dates: start: 20141112, end: 20180116
  5. AMARYL M [Concomitant]
     Active Substance: GLIMEPIRIDE\METFORMIN
     Indication: DIABETES MELLITUS
     Route: 048
     Dates: start: 20170712, end: 20180116
  6. STELARA [Suspect]
     Active Substance: USTEKINUMAB
     Indication: PSORIASIS
     Route: 058
     Dates: start: 20160302, end: 20171122
  7. ATORVA [Concomitant]
     Indication: PROPHYLAXIS
     Route: 048
     Dates: start: 20170712, end: 20180116
  8. ISONIAZID. [Concomitant]
     Active Substance: ISONIAZID
     Indication: LATENT TUBERCULOSIS
     Route: 048
     Dates: start: 20170811, end: 20180116
  9. PYRIDOXINE HCL [Concomitant]
     Active Substance: PYRIDOXINE HYDROCHLORIDE
     Indication: PROPHYLAXIS
     Route: 048
     Dates: start: 20170811, end: 20180116
  10. DOXAZOSIN MESILATE [Concomitant]
     Active Substance: DOXAZOSIN MESYLATE
     Indication: NOCTURIA
     Dosage: QN
     Route: 048
     Dates: start: 20160420, end: 20180116

REACTIONS (7)
  - Ischaemic cardiomyopathy [Fatal]
  - Type 2 diabetes mellitus [Fatal]
  - Coronary artery disease [Fatal]
  - Cardiogenic shock [Fatal]
  - Cardiac failure congestive [Fatal]
  - Septic shock [Fatal]
  - Pneumonia [Unknown]

NARRATIVE: CASE EVENT DATE: 20171228
